FAERS Safety Report 4435247-1 (Version None)
Quarter: 2004Q3

REPORT INFORMATION
  Report Type: 
  Country: None (occurrence: None)
  Receive Date: 20040827
  Receipt Date: 20040819
  Transmission Date: 20050211
  Serious: Yes (Other)
  Sender: FDA-Public Use
  Company Number: 4475

PATIENT
  Age: 80 Year
  Sex: Female

DRUGS (2)
  1. HYCAMTIN [Suspect]
     Dosage: 1.1MG PER DAY
     Route: 042
     Dates: start: 20040810, end: 20040812
  2. UNSPECIFIED MEDICATIONS [Concomitant]
     Indication: DRUG USE FOR UNKNOWN INDICATION

REACTIONS (1)
  - HYPONATRAEMIA [None]
